FAERS Safety Report 7033796-3 (Version None)
Quarter: 2010Q4

REPORT INFORMATION
  Report Type: 
  Country: None (occurrence: None)
  Receive Date: 20101007
  Receipt Date: 20100928
  Transmission Date: 20110411
  Serious: Yes (Other)
  Sender: FDA-Public Use
  Company Number: PHHY2010FR56046

PATIENT
  Sex: Female
  Weight: 43 kg

DRUGS (2)
  1. EXTAVIA [Suspect]
     Indication: MULTIPLE SCLEROSIS
     Dosage: 1 ML, QOD
     Route: 058
     Dates: start: 20100723
  2. PARACETAMOL [Concomitant]

REACTIONS (4)
  - DEPRESSION [None]
  - MIDDLE INSOMNIA [None]
  - NIGHT SWEATS [None]
  - POLYMENORRHOEA [None]
